FAERS Safety Report 8475011-X (Version None)
Quarter: 2012Q2

REPORT INFORMATION
  Report Type: 
  Country: None (occurrence: None)
  Receive Date: 20120628
  Receipt Date: 20120620
  Transmission Date: 20120825
  Serious: Yes (Other)
  Sender: FDA-Public Use
  Company Number: US-BAYER-2012-018051

PATIENT
  Age: 43 Year
  Sex: Female

DRUGS (16)
  1. ROBAXIN [Concomitant]
  2. CLONAZEPAM [Concomitant]
     Dosage: 1 MG, UNK
     Dates: start: 20071204
  3. OXYCODONE HCL AND ACETAMINOPHEN [Concomitant]
     Dosage: 5-325 MG
     Dates: start: 20071210
  4. EXCEDRIN (MIGRAINE) [Concomitant]
  5. YAZ [Suspect]
     Indication: PREMENSTRUAL SYNDROME
     Dosage: UNK
     Dates: start: 20080315, end: 20080902
  6. METHOCARBAMOL [Concomitant]
     Dosage: 750 MG, UNK
     Dates: start: 20071130
  7. AMOXICILLIN [Concomitant]
     Dosage: 875 MG, UNK
     Dates: start: 20071204
  8. PENICILLIN VK [Concomitant]
     Dosage: 500 MG, UNK
     Dates: start: 20071204
  9. HYDROCODONE BITARTRATE AND ACETAMINOPHEN [Concomitant]
     Dosage: 7.5-750 MG
     Route: 048
     Dates: start: 20071206
  10. YAZ [Suspect]
  11. NAPROSYN [Concomitant]
  12. YASMIN [Suspect]
  13. ONDANSETRON (ZOFRAN) [Concomitant]
     Dosage: 4 MG, UNK
     Dates: start: 20080209
  14. YASMIN [Suspect]
     Indication: PREMENSTRUAL SYNDROME
     Dosage: UNK
     Dates: start: 20071001, end: 20080315
  15. XANAX [Concomitant]
     Dosage: 0.25 MG/PRN
     Route: 048
     Dates: start: 20080118
  16. NAPROXEN [Concomitant]
     Dosage: 500 MG, PRN
     Route: 048
     Dates: start: 20071130

REACTIONS (4)
  - ABDOMINAL DISTENSION [None]
  - CHOLECYSTECTOMY [None]
  - BILIARY DYSKINESIA [None]
  - ABDOMINAL PAIN [None]
